FAERS Safety Report 13962740 (Version 1)
Quarter: 2017Q3

REPORT INFORMATION
  Report Type: Spontaneous
  Country: US (occurrence: US)
  Receive Date: 20170912
  Receipt Date: 20170912
  Transmission Date: 20171128
  Serious: Yes (Other)
  Sender: FDA-Public Use
  Company Number: None

PATIENT
  Age: 44 Year
  Sex: Male
  Weight: 58.95 kg

DRUGS (5)
  1. LINZESS [Concomitant]
     Active Substance: LINACLOTIDE
  2. DAILY VITAMIN [Concomitant]
     Active Substance: VITAMINS
  3. ESCITALOPRAM [Suspect]
     Active Substance: ESCITALOPRAM OXALATE
     Indication: DEPRESSION
     Dosage: ?          QUANTITY:30 TABLET(S);?
     Route: 048
     Dates: start: 20170227, end: 20170804
  4. PROBIOTIC [Concomitant]
     Active Substance: PROBIOTICS NOS
  5. LANSOPRAZOLE. [Concomitant]
     Active Substance: LANSOPRAZOLE

REACTIONS (5)
  - Hiatus hernia [None]
  - Vomiting [None]
  - Barrett^s oesophagus [None]
  - Weight decreased [None]
  - Constipation [None]

NARRATIVE: CASE EVENT DATE: 20170304
